FAERS Safety Report 19806699 (Version 18)
Quarter: 2025Q1

REPORT INFORMATION
  Report Type: Report from Study
  Country: CA (occurrence: CA)
  Receive Date: 20210908
  Receipt Date: 20250226
  Transmission Date: 20250408
  Serious: Yes (Other)
  Sender: ROCHE
  Company Number: CA-002147023-NVSC2021CA196769

PATIENT
  Sex: Female

DRUGS (7)
  1. XOLAIR [Suspect]
     Active Substance: OMALIZUMAB
     Indication: Chronic spontaneous urticaria
     Route: 058
     Dates: start: 20210203, end: 20220309
  2. XOLAIR [Suspect]
     Active Substance: OMALIZUMAB
     Route: 058
     Dates: start: 20210115, end: 20220309
  3. XOLAIR [Suspect]
     Active Substance: OMALIZUMAB
     Dosage: 300 MG, EVERY 4 WEEKS
     Route: 058
  4. CETIRIZINE [Concomitant]
     Active Substance: CETIRIZINE HYDROCHLORIDE
     Indication: Product used for unknown indication
  5. RUPATADINE [Concomitant]
     Active Substance: RUPATADINE
  6. RUPATADINE [Concomitant]
     Active Substance: RUPATADINE
  7. TRINTELLIX [Concomitant]
     Active Substance: VORTIOXETINE HYDROBROMIDE
     Indication: Product used for unknown indication
     Dosage: 10 MG, QD
     Route: 065

REACTIONS (13)
  - Angioedema [Unknown]
  - Anaphylactic reaction [Recovering/Resolving]
  - Malaise [Unknown]
  - Swelling face [Unknown]
  - Rotator cuff syndrome [Not Recovered/Not Resolved]
  - Erythema [Unknown]
  - Injection site reaction [Recovering/Resolving]
  - Injection site swelling [Unknown]
  - Injection site pruritus [Recovering/Resolving]
  - Injection site induration [Recovering/Resolving]
  - Pruritus [Unknown]
  - Injection site erythema [Recovering/Resolving]
  - Pruritus [Unknown]

NARRATIVE: CASE EVENT DATE: 20211117
